FAERS Safety Report 16740660 (Version 2)
Quarter: 2019Q4

REPORT INFORMATION
  Report Type: Spontaneous
  Country: US (occurrence: US)
  Receive Date: 20190826
  Receipt Date: 20191031
  Transmission Date: 20200122
  Serious: No
  Sender: FDA-Public Use
  Company Number: US-PFIZER INC-2019364170

PATIENT
  Age: 71 Year
  Sex: Male
  Weight: 87.9 kg

DRUGS (3)
  1. GABAPENTIN. [Suspect]
     Active Substance: GABAPENTIN
     Indication: NEURALGIA
     Dosage: 100 MG, 2X/DAY
     Route: 048
     Dates: start: 201908
  2. GABAPENTIN. [Suspect]
     Active Substance: GABAPENTIN
     Indication: LIGAMENT SPRAIN
     Dosage: 100 MG, 3X/DAY
     Route: 048
     Dates: start: 201908
  3. GABAPENTIN. [Suspect]
     Active Substance: GABAPENTIN
     Dosage: 1 DF, 3X/DAY
     Dates: start: 20190830

REACTIONS (3)
  - Sleep disorder [Unknown]
  - Off label use [Unknown]
  - Drug ineffective for unapproved indication [Unknown]
